FAERS Safety Report 6355800-8 (Version None)
Quarter: 2009Q3

REPORT INFORMATION
  Report Type: 
  Country: None (occurrence: None)
  Receive Date: 20090915
  Receipt Date: 20070315
  Transmission Date: 20100115
  Serious: Yes (Hospitalization, Other)
  Sender: FDA-Public Use
  Company Number: US-ASTRAZENECA-2006UW03270

PATIENT
  Age: 276 Month
  Sex: Male
  Weight: 107 kg

DRUGS (23)
  1. SEROQUEL [Suspect]
     Indication: PSYCHOTIC BEHAVIOUR
     Dosage: 100 MG -300 MG
     Route: 048
     Dates: start: 19990101, end: 20061001
  2. SEROQUEL [Suspect]
     Indication: INSOMNIA
     Dosage: 100 MG -300 MG
     Route: 048
     Dates: start: 19990101, end: 20061001
  3. SEROQUEL [Suspect]
     Dosage: 100 MG-300 MG
     Route: 048
     Dates: start: 20030917, end: 20060705
  4. SEROQUEL [Suspect]
     Dosage: 100 MG-300 MG
     Route: 048
     Dates: start: 20030917, end: 20060705
  5. GLUCOVANCE [Concomitant]
     Dosage: 2.5 MG/500 MG-5 MG/500 MG
     Route: 048
     Dates: start: 20010911
  6. LANTUS [Concomitant]
     Dates: start: 20060626
  7. XANAX [Concomitant]
     Dosage: 1 MG-4 MG
     Route: 048
     Dates: start: 20030320
  8. LIPITOR [Concomitant]
     Dosage: 40 MG-80 MG
     Route: 048
     Dates: start: 20030807
  9. HYDROCODONE BITARTRATE AND ACETAMINOPHEN [Concomitant]
     Dosage: 5/500 MG-7.5/500 MG
     Route: 048
     Dates: start: 19990226
  10. DEPAKOTE [Concomitant]
     Dosage: 500 MG-1000 MG
     Dates: start: 20030818
  11. LISINOPRIL [Concomitant]
     Dosage: 20 MG-40 MG
     Route: 048
     Dates: start: 20030403
  12. SINGULAIR [Concomitant]
     Route: 048
     Dates: start: 20040720
  13. CLARITIN [Concomitant]
     Route: 048
     Dates: start: 20011004
  14. LEXAPRO [Concomitant]
     Dates: start: 20040511
  15. ATIVAN [Concomitant]
     Dosage: 1 MG TAB 1-3 THRICE A DAY
     Route: 048
     Dates: start: 20011004
  16. NAPROXEN [Concomitant]
     Dosage: 500 MG ONE TABLET EVERY 12 HOURS
     Route: 048
     Dates: start: 20010416
  17. CELEBREX [Concomitant]
     Dosage: 100 MG-200 MG
     Route: 048
     Dates: start: 20001006
  18. AVANDIA [Concomitant]
     Route: 048
     Dates: start: 20060705
  19. TOPAMAX [Concomitant]
     Route: 048
     Dates: start: 20030123
  20. ULTRACET [Concomitant]
     Indication: PAIN
     Dosage: 37.5-325 1-2 TABS 4-6 HRS AS REQUIRED
     Dates: start: 20021219
  21. OXYCODONE [Concomitant]
     Dates: start: 20011004
  22. FENOFIBRATE [Concomitant]
     Route: 048
     Dates: start: 20060705
  23. TRAZODONE [Concomitant]
     Indication: SLEEP DISORDER
     Dosage: 50 MG 1 TO 2 AT BEDTIME
     Route: 048
     Dates: start: 20030415

REACTIONS (12)
  - AMNESIA [None]
  - APPENDICECTOMY [None]
  - BLOOD TRIGLYCERIDES INCREASED [None]
  - DIABETES MELLITUS [None]
  - DIABETES MELLITUS INADEQUATE CONTROL [None]
  - DIABETIC NEUROPATHY [None]
  - FOOT OPERATION [None]
  - HIP ARTHROPLASTY [None]
  - HYPERLIPIDAEMIA [None]
  - NEUROPATHY PERIPHERAL [None]
  - TYPE 2 DIABETES MELLITUS [None]
  - WEIGHT INCREASED [None]
